FAERS Safety Report 8388727-0 (Version None)
Quarter: 2012Q2

REPORT INFORMATION
  Report Type: 
  Country: None (occurrence: None)
  Receive Date: 20120527
  Receipt Date: 20120523
  Transmission Date: 20120825
  Serious: Yes (Hospitalization)
  Sender: FDA-Public Use
  Company Number: US-AMGEN-USASP2012030457

PATIENT
  Age: 68 Year
  Sex: Female
  Weight: 73.923 kg

DRUGS (30)
  1. VITAMIN D [Concomitant]
  2. HYDROCHLOROTHIAZIDE [Concomitant]
     Dosage: 12.5 MG, QD
     Route: 048
     Dates: start: 20120425
  3. MELOXICAM [Concomitant]
     Dosage: UNK UNK, QD
     Route: 048
     Dates: start: 20110613
  4. PROTONIX [Concomitant]
     Dosage: 40 MG, QD
     Route: 048
     Dates: start: 20110620
  5. EMEND [Concomitant]
     Dosage: UNK UNK, PRN
  6. AMLODIPINE BESYLATE [Concomitant]
     Dosage: 5 MG, QD
     Route: 048
     Dates: start: 20120425
  7. KLOR-CON [Concomitant]
     Dosage: 20 MEQ, TID
     Route: 048
     Dates: start: 20120216
  8. PROCHLORPERAZINE MALEATE [Concomitant]
     Indication: NAUSEA
     Dosage: 10 MG, TID
     Route: 048
     Dates: start: 20120305
  9. ETOPOSIDE [Concomitant]
     Indication: LUNG NEOPLASM MALIGNANT
     Dosage: 180 MG, QMO
     Route: 042
     Dates: start: 20110620, end: 20111208
  10. CAMPTOSAR [Concomitant]
     Indication: LUNG NEOPLASM MALIGNANT
     Dosage: 120 MG, UNK
     Route: 042
     Dates: start: 20120305
  11. CISPLATIN [Concomitant]
     Indication: LUNG NEOPLASM MALIGNANT
     Dosage: 100 MG, UNK
     Route: 042
     Dates: start: 20120305
  12. PERCOCET [Concomitant]
     Dosage: UNK UNK, PRN
     Route: 048
     Dates: start: 20120416
  13. NEUPOGEN [Concomitant]
     Indication: NEUTROPENIA
     Dosage: 480 MG, PRN
     Route: 058
     Dates: start: 20110826, end: 20111213
  14. BUPROPION HCL [Concomitant]
  15. PEPCID [Concomitant]
     Dosage: UNK UNK, PRN
  16. COMPAZINE [Concomitant]
  17. XGEVA [Suspect]
     Indication: PRODUCT USED FOR UNKNOWN INDICATION
     Route: 058
     Dates: start: 20110824, end: 20120425
  18. ADVAIR DISKUS 100/50 [Concomitant]
     Dosage: UNK DF, BID
     Dates: start: 20110620
  19. K-PHOS NEUTRAL [Concomitant]
  20. DECADRON [Concomitant]
     Dosage: UNK UNK, PRN
  21. ZOFRAN [Concomitant]
     Dosage: UNK UNK, PRN
  22. BENADRYL [Concomitant]
     Dosage: UNK UNK, PRN
  23. FIRST MOUTHWASH BXN [Concomitant]
  24. CARBO                              /00408201/ [Concomitant]
     Indication: LUNG NEOPLASM MALIGNANT
     Dosage: 400 MG, UNK
     Route: 042
     Dates: start: 20110620, end: 20111208
  25. ALOXI [Concomitant]
     Indication: NAUSEA
     Dosage: 250 MG, PRN
     Route: 042
     Dates: start: 20110620
  26. CALCIUM PLUS D3 [Concomitant]
  27. NEURONTIN [Concomitant]
  28. KYTRIL [Concomitant]
     Dosage: UNK UNK, PRN
  29. SUCRALFATE [Concomitant]
     Dosage: UNK UNK, PRN
  30. LEUKINE [Concomitant]
     Indication: NEUTROPENIA
     Dosage: 500 MG, PRN
     Route: 058
     Dates: start: 20110916, end: 20110921

REACTIONS (3)
  - BLOOD MAGNESIUM DECREASED [None]
  - HYPOPHOSPHATAEMIA [None]
  - HYPOCALCAEMIA [None]
